FAERS Safety Report 25907821 (Version 1)
Quarter: 2025Q4

REPORT INFORMATION
  Report Type: Spontaneous
  Country: US (occurrence: US)
  Receive Date: 20251010
  Receipt Date: 20251010
  Transmission Date: 20260117
  Serious: Yes (Death)
  Sender: EISAI
  Company Number: US-Eisai-EC-2025-198101

PATIENT
  Age: 82 Year
  Sex: Male
  Weight: 81.19 kg

DRUGS (2)
  1. LENVIMA [Suspect]
     Active Substance: LENVATINIB
     Indication: Renal cancer
     Dosage: FREQUENCY UNKNOWN
     Route: 048
  2. KEYTRUDA [Suspect]
     Active Substance: PEMBROLIZUMAB
     Indication: Renal cancer
     Route: 041
     Dates: start: 20250104

REACTIONS (1)
  - Death [Fatal]

NARRATIVE: CASE EVENT DATE: 20250709
